FAERS Safety Report 16652023 (Version 2)
Quarter: 2019Q3

REPORT INFORMATION
  Report Type: Spontaneous
  Country: US (occurrence: US)
  Receive Date: 20190731
  Receipt Date: 20190927
  Transmission Date: 20191004
  Serious: No
  Sender: FDA-Public Use
  Company Number: US-PFIZER INC-2019295835

PATIENT
  Age: 33 Year
  Sex: Female

DRUGS (7)
  1. GABAPENTIN. [Concomitant]
     Active Substance: GABAPENTIN
  2. TYLENOL [Concomitant]
     Active Substance: ACETAMINOPHEN
  3. IBUPROFEN. [Concomitant]
     Active Substance: IBUPROFEN
  4. LYRICA [Suspect]
     Active Substance: PREGABALIN
     Dosage: 150 MG, AS NEEDED (TAKE 1 CAPSULE(S) TWICE A DAY AS NEEDED)
     Route: 048
  5. LYRICA [Suspect]
     Active Substance: PREGABALIN
     Indication: ACETABULUM FRACTURE
     Dosage: 150 MG, 2X/DAY (1 CAPSULE TWICE A DAY)
     Route: 048
  6. NYSTATIN. [Concomitant]
     Active Substance: NYSTATIN
  7. FAMOTIDINE. [Concomitant]
     Active Substance: FAMOTIDINE

REACTIONS (2)
  - Off label use [Unknown]
  - Product use in unapproved indication [Unknown]
